FAERS Safety Report 20416514 (Version 1)
Quarter: 2022Q1

REPORT INFORMATION
  Report Type: Spontaneous
  Country: US (occurrence: None)
  Receive Date: 20220201
  Receipt Date: 20220201
  Transmission Date: 20220423
  Serious: Yes (Other)
  Sender: FDA-Public Use
  Company Number: None

PATIENT
  Age: 69 Year
  Sex: Female
  Weight: 65.25 kg

DRUGS (6)
  1. TEPEZZA [Suspect]
     Active Substance: TEPROTUMUMAB-TRBW
     Indication: Endocrine ophthalmopathy
     Dosage: OTHER FREQUENCY : TRIWEEKLY INFUSION;?
     Route: 042
     Dates: start: 20220114
  2. METFORMIN [Concomitant]
     Active Substance: METFORMIN HYDROCHLORIDE
  3. ZETIA [Concomitant]
     Active Substance: EZETIMIBE
  4. LEVOTHYROXINE [Concomitant]
     Active Substance: LEVOTHYROXINE
  5. Vitamin D w/calcium [Concomitant]
  6. CINNAMON [Concomitant]
     Active Substance: CINNAMON

REACTIONS (3)
  - Blood glucose increased [None]
  - Dry skin [None]
  - Skin fissures [None]

NARRATIVE: CASE EVENT DATE: 20220114
